FAERS Safety Report 5405915-3 (Version None)
Quarter: 2007Q3

REPORT INFORMATION
  Report Type: 
  Country: None (occurrence: None)
  Receive Date: 20070802
  Receipt Date: 20070724
  Transmission Date: 20080115
  Serious: Yes (Hospitalization)
  Sender: FDA-Public Use
  Company Number: 2007-03577

PATIENT
  Age: 63 Year
  Sex: Male

DRUGS (3)
  1. GABAPENTIN [Suspect]
     Indication: BACK PAIN
     Dosage: 4900 MG, DAILY X 11 DAYS, ORAL, 1800 MG, DAILY, ORAL
     Route: 048
     Dates: start: 20050101, end: 20050101
  2. GABAPENTIN [Suspect]
     Indication: BACK PAIN
     Dosage: 4900 MG, DAILY X 11 DAYS, ORAL, 1800 MG, DAILY, ORAL
     Route: 048
     Dates: start: 20050101
  3. OXYCODONE HCL [Concomitant]

REACTIONS (6)
  - AGITATION [None]
  - CONFUSIONAL STATE [None]
  - DELIRIUM TREMENS [None]
  - DRUG WITHDRAWAL SYNDROME [None]
  - HALLUCINATION [None]
  - TACHYCARDIA [None]
